FAERS Safety Report 8122046-2 (Version None)
Quarter: 2012Q1

REPORT INFORMATION
  Report Type: 
  Country: None (occurrence: None)
  Receive Date: 20120207
  Receipt Date: 20120207
  Transmission Date: 20120608
  Serious: Yes (Other)
  Sender: FDA-Public Use
  Company Number: None

PATIENT
  Sex: Female
  Weight: 90.7194 kg

DRUGS (6)
  1. NITROFURANTOIN [Suspect]
     Indication: URINARY TRACT INFECTION
     Dosage: 100MG EVERY 12 HOURS MOUTH
     Route: 048
     Dates: start: 20120128
  2. NITROFURANTOIN [Suspect]
     Indication: CYSTITIS
     Dosage: 100MG EVERY 12 HOURS MOUTH
     Route: 048
     Dates: start: 20120128
  3. NITROFURANTOIN [Suspect]
     Indication: URINARY TRACT INFECTION
     Dosage: 100MG EVERY 12 HOURS MOUTH
     Route: 048
     Dates: start: 20120129
  4. NITROFURANTOIN [Suspect]
     Indication: CYSTITIS
     Dosage: 100MG EVERY 12 HOURS MOUTH
     Route: 048
     Dates: start: 20120129
  5. NITROFURANTOIN [Suspect]
     Indication: URINARY TRACT INFECTION
     Dosage: 100MG EVERY 12 HOURS MOUTH
     Route: 048
     Dates: start: 20120127
  6. NITROFURANTOIN [Suspect]
     Indication: CYSTITIS
     Dosage: 100MG EVERY 12 HOURS MOUTH
     Route: 048
     Dates: start: 20120127

REACTIONS (3)
  - HEADACHE [None]
  - NECK PAIN [None]
  - VOMITING [None]
